FAERS Safety Report 11356740 (Version 2)
Quarter: 2015Q3

REPORT INFORMATION
  Report Type: Spontaneous
  Country: US (occurrence: US)
  Receive Date: 20150803
  Receipt Date: 20150903
  Transmission Date: 20151125
  Serious: No
  Sender: FDA-Public Use
  Company Number: US-ELI_LILLY_AND_COMPANY-US201210002984

PATIENT
  Sex: Male

DRUGS (6)
  1. METFORMIN [Concomitant]
     Active Substance: METFORMIN HYDROCHLORIDE
  2. TRENTAL [Concomitant]
     Active Substance: PENTOXIFYLLINE
  3. CYMBALTA [Suspect]
     Active Substance: DULOXETINE HYDROCHLORIDE
     Indication: DEPRESSION
     Dosage: 60 MG, QD
  4. ZYPREXA [Suspect]
     Active Substance: OLANZAPINE
     Indication: AGITATION
     Dosage: UNK, ZYPREXA TWICE DAILY EVERY OTHER DAY AND THEN ONCE DAILY EVERY OTHER DAY ALTERNATING
  5. NEURONTIN [Concomitant]
     Active Substance: GABAPENTIN
  6. IBUPROFEN. [Concomitant]
     Active Substance: IBUPROFEN

REACTIONS (8)
  - Somnolence [Unknown]
  - Posture abnormal [Unknown]
  - Diabetic neuropathy [Unknown]
  - Extrapyramidal disorder [Unknown]
  - Parkinsonian rest tremor [Unknown]
  - Dementia Alzheimer^s type [Unknown]
  - Aggression [Unknown]
  - Tremor [Unknown]
